FAERS Safety Report 4424917-7 (Version None)
Quarter: 2004Q3

REPORT INFORMATION
  Report Type: 
  Country: None (occurrence: None)
  Receive Date: 20040809
  Receipt Date: 20040802
  Transmission Date: 20050211
  Serious: No
  Sender: FDA-Public Use
  Company Number: 2004-116363-NL

PATIENT
  Age: 38 Year
  Sex: Female

DRUGS (5)
  1. MIRTAZAPINE [Suspect]
     Indication: DEPRESSION
     Dosage: 30 MG
     Route: 048
     Dates: start: 20040402, end: 20040503
  2. ETORICOXIB [Concomitant]
  3. NITRAZEPAM [Concomitant]
  4. DIAZEPAM [Concomitant]
  5. CHLORPROMAZINE [Concomitant]

REACTIONS (3)
  - ABNORMAL BEHAVIOUR [None]
  - AGGRESSION [None]
  - ANXIETY [None]
